FAERS Safety Report 6843140-X (Version None)
Quarter: 2010Q3

REPORT INFORMATION
  Report Type: 
  Country: None (occurrence: None)
  Receive Date: 20100715
  Receipt Date: 20100706
  Transmission Date: 20110219
  Serious: Yes (Hospitalization)
  Sender: FDA-Public Use
  Company Number: 2008BI020762

PATIENT
  Age: 54 Year
  Sex: Female
  Weight: 64 kg

DRUGS (3)
  1. TYSABRI [Suspect]
     Indication: MULTIPLE SCLEROSIS
     Route: 042
     Dates: start: 20071126, end: 20090601
  2. TYSABRI [Suspect]
     Route: 042
     Dates: start: 20090901
  3. PERCOCET [Concomitant]
     Indication: FIBROMYALGIA

REACTIONS (3)
  - FALL [None]
  - LOWER LIMB FRACTURE [None]
  - PHOTOSENSITIVITY REACTION [None]
